FAERS Safety Report 19450183 (Version 3)
Quarter: 2021Q3

REPORT INFORMATION
  Report Type: Spontaneous
  Country: JP (occurrence: JP)
  Receive Date: 20210622
  Receipt Date: 20210714
  Transmission Date: 20211014
  Serious: Yes (Other)
  Sender: FDA-Public Use
  Company Number: JP-MYOVANT SCIENCES GMBH-2021MYSCI0600270

PATIENT
  Age: 51 Year
  Sex: Female

DRUGS (3)
  1. RELUMINA [Suspect]
     Active Substance: RELUGOLIX
     Dosage: 40 MILLIGRAM
     Route: 048
     Dates: start: 20210501, end: 20210610
  2. RELUMINA [Suspect]
     Active Substance: RELUGOLIX
     Indication: HEAVY MENSTRUAL BLEEDING
     Dosage: 40 MILLIGRAM
     Route: 048
     Dates: start: 202007, end: 202008
  3. FERROMIA [Concomitant]
     Active Substance: SODIUM FERROUS CITRATE
     Indication: IRON DEFICIENCY ANAEMIA
     Dosage: UNK
     Route: 048
     Dates: start: 20190610

REACTIONS (4)
  - Chest discomfort [Recovering/Resolving]
  - Respiratory distress [Recovering/Resolving]
  - Malaise [Recovering/Resolving]
  - Off label use [Unknown]

NARRATIVE: CASE EVENT DATE: 202007
